FAERS Safety Report 5332131-6 (Version None)
Quarter: 2007Q2

REPORT INFORMATION
  Report Type: 
  Country: None (occurrence: None)
  Receive Date: 20070518
  Receipt Date: 20070502
  Transmission Date: 20071010
  Serious: Yes (Other)
  Sender: FDA-Public Use
  Company Number: 8023332

PATIENT
  Age: 5 Month
  Sex: Male
  Weight: 10 kg

DRUGS (2)
  1. LEVETIRACETAM [Suspect]
     Indication: CONVULSION
     Dosage: 150 MG 2/D PO
     Route: 048
     Dates: start: 20051001, end: 20070101
  2. TOPIRAMATE [Concomitant]

REACTIONS (2)
  - CONVULSION [None]
  - DROP ATTACKS [None]
